FAERS Safety Report 10412707 (Version 2)
Quarter: 2014Q3

REPORT INFORMATION
  Report Type: Report from Study
  Country: NO (occurrence: NO)
  Receive Date: 20140827
  Receipt Date: 20140827
  Transmission Date: 20150326
  Serious: Yes (Life-Threatening, Hospitalization)
  Sender: FDA-Public Use
  Company Number: NO-ROCHE-1215880

PATIENT
  Age: 61 Year
  Sex: Male
  Weight: 89 kg

DRUGS (18)
  1. PARACET [Concomitant]
     Active Substance: ACETAMINOPHEN
     Indication: HEADACHE
     Route: 065
     Dates: start: 20130306, end: 20130410
  2. PARACET [Concomitant]
     Active Substance: ACETAMINOPHEN
     Route: 065
     Dates: start: 20130314, end: 20130314
  3. PARACET [Concomitant]
     Active Substance: ACETAMINOPHEN
     Route: 065
     Dates: start: 20130315, end: 20130315
  4. RITUXIMAB [Suspect]
     Active Substance: RITUXIMAB
     Indication: NON-HODGKIN^S LYMPHOMA
     Route: 042
     Dates: start: 20130306
  5. RITUXIMAB [Suspect]
     Active Substance: RITUXIMAB
     Route: 042
     Dates: start: 20130410, end: 20130410
  6. AMOXICILLIN. [Concomitant]
     Active Substance: AMOXICILLIN
     Indication: PHARYNGITIS
     Route: 065
     Dates: start: 20130315, end: 20130321
  7. PARACET [Concomitant]
     Active Substance: ACETAMINOPHEN
     Route: 065
     Dates: start: 20130320, end: 20130320
  8. IMOVANE [Concomitant]
     Active Substance: ZOPICLONE
     Indication: INSOMNIA
     Route: 065
     Dates: start: 20130321, end: 20130321
  9. OXYCONTIN [Concomitant]
     Active Substance: OXYCODONE HYDROCHLORIDE
     Indication: ERYTHEMA
     Route: 065
     Dates: start: 20130414
  10. RITUXIMAB [Suspect]
     Active Substance: RITUXIMAB
     Indication: NON-HODGKIN^S LYMPHOMA
     Route: 058
     Dates: start: 20130410, end: 20130410
  11. FINASTERID [Concomitant]
     Indication: URINARY RETENTION
     Route: 065
     Dates: start: 20130320
  12. LAKTULOSE [Concomitant]
     Route: 065
     Dates: start: 20130320
  13. PARACET [Concomitant]
     Active Substance: ACETAMINOPHEN
     Route: 065
     Dates: start: 20130321, end: 20130321
  14. OXYNORM [Concomitant]
     Active Substance: OXYCODONE HYDROCHLORIDE
     Indication: ERYTHEMA
     Route: 065
     Dates: start: 20130413, end: 20130413
  15. GENTAMYCIN [Concomitant]
     Active Substance: GENTAMICIN
     Indication: PHARYNGITIS
     Route: 065
     Dates: start: 20130313, end: 20130315
  16. CETIRIZIN [Concomitant]
     Route: 065
     Dates: start: 20130306, end: 20130410
  17. OMNIC [Concomitant]
     Active Substance: TAMSULOSIN HYDROCHLORIDE
     Indication: URINARY RETENTION
     Route: 065
     Dates: start: 20130316, end: 20130318
  18. SOMAC [Concomitant]
     Active Substance: PANTOPRAZOLE SODIUM
     Route: 065
     Dates: start: 20130414

REACTIONS (3)
  - Infusion related reaction [Recovered/Resolved]
  - Febrile neutropenia [Recovered/Resolved]
  - Erythema [Not Recovered/Not Resolved]

NARRATIVE: CASE EVENT DATE: 20130410
